FAERS Safety Report 7346429-3 (Version None)
Quarter: 2011Q1

REPORT INFORMATION
  Report Type: 
  Country: None (occurrence: None)
  Receive Date: 20110311
  Receipt Date: 20110308
  Transmission Date: 20110831
  Serious: Yes (Death)
  Sender: FDA-Public Use
  Company Number: NL-SANOFI-AVENTIS-2011SA013149

PATIENT
  Age: 55 Year
  Sex: Male
  Weight: 68 kg

DRUGS (24)
  1. INSULIN INJECTION, BIPHASIC [Concomitant]
     Dates: start: 20110124
  2. MACROGOL [Concomitant]
     Indication: CONSTIPATION
     Dates: start: 20101116, end: 20110124
  3. SODIUM CHLORIDE [Concomitant]
     Dosage: CONTINUOUS
     Dates: start: 20110118, end: 20110122
  4. INVESTIGATIONAL DRUG [Concomitant]
     Route: 065
     Dates: end: 20110204
  5. ESOMEPRAZOLE [Concomitant]
     Dates: start: 20110124
  6. PANCREATIN [Concomitant]
     Indication: NEOPLASM
     Route: 065
     Dates: start: 20100902
  7. OXYCODONE HYDROCHLORIDE [Concomitant]
     Dates: start: 20110113, end: 20110124
  8. TAXOTERE [Suspect]
     Route: 065
     Dates: start: 20110101, end: 20110101
  9. INVESTIGATIONAL DRUG [Concomitant]
     Route: 048
     Dates: start: 20110110
  10. ESOMEPRAZOLE [Concomitant]
     Indication: PROPHYLAXIS
     Dates: start: 20100902, end: 20110123
  11. INSULIN GLARGINE [Concomitant]
     Indication: DIABETES MELLITUS
     Route: 065
     Dates: start: 20101116, end: 20110123
  12. ESOMEPRAZOLE [Concomitant]
     Dates: start: 20100902, end: 20110123
  13. ESOMEPRAZOLE [Concomitant]
     Dates: start: 20110124
  14. TAXOTERE [Suspect]
     Route: 048
     Dates: start: 20110110, end: 20110110
  15. INSULIN GLARGINE [Concomitant]
     Route: 065
     Dates: start: 20110124
  16. PARACETAMOL [Concomitant]
     Indication: PAIN
     Dates: start: 20101116, end: 20110124
  17. DEXAMETHASONE [Concomitant]
     Dates: start: 20110109, end: 20110111
  18. DEXAMETHASONE [Concomitant]
     Dates: start: 20110130, end: 20110201
  19. NADROPARIN [Concomitant]
     Indication: THROMBOSIS PROPHYLAXIS
     Dates: start: 20110119, end: 20110122
  20. OXYCODONE HYDROCHLORIDE [Concomitant]
     Indication: PAIN
     Route: 065
     Dates: start: 20110113
  21. PRIMAXIN [Concomitant]
     Dosage: 500/500MG
     Dates: start: 20110118, end: 20110122
  22. INSULIN INJECTION, BIPHASIC [Concomitant]
     Indication: DIABETES MELLITUS
     Dates: start: 20101116, end: 20110123
  23. PANCREATIN [Concomitant]
     Indication: PANCREATIC INSUFFICIENCY
     Dates: start: 20100908
  24. OXYCODONE HYDROCHLORIDE [Concomitant]
     Dates: start: 20101030, end: 20110112

REACTIONS (1)
  - DEATH [None]
